FAERS Safety Report 9776635 (Version 1)
Quarter: 2013Q4

REPORT INFORMATION
  Report Type: Spontaneous
  Country: US (occurrence: US)
  Receive Date: 20131220
  Receipt Date: 20131220
  Transmission Date: 20140711
  Serious: No
  Sender: FDA-Public Use
  Company Number: US-BIOGENIDEC-2013BI121525

PATIENT
  Age: 46 Year
  Sex: Female

DRUGS (8)
  1. TECFIDERA [Suspect]
     Indication: MULTIPLE SCLEROSIS
     Route: 048
     Dates: start: 201308
  2. CENTRUM [Concomitant]
  3. AMPYRA [Concomitant]
  4. CITALOPRAM [Concomitant]
  5. LORATADINE [Concomitant]
  6. BACLOFEN [Concomitant]
  7. VITAMIN D [Concomitant]
  8. OXYBUTYNIN CHLORIDE [Concomitant]

REACTIONS (2)
  - Chest pain [Unknown]
  - Palpitations [Unknown]
